FAERS Safety Report 4729492-5 (Version None)
Quarter: 2005Q3

REPORT INFORMATION
  Report Type: 
  Country: None (occurrence: None)
  Receive Date: 20050801
  Receipt Date: 20050727
  Transmission Date: 20060218
  Serious: Yes (Death)
  Sender: FDA-Public Use
  Company Number: DE-MERCK-0507DEU00214

PATIENT
  Age: 63 Year
  Sex: Male

DRUGS (4)
  1. VYTORIN [Suspect]
     Indication: HYPERCHOLESTEROLAEMIA
     Route: 048
     Dates: start: 20050511
  2. ATORVASTATIN CALCIUM [Concomitant]
     Indication: HYPERCHOLESTEROLAEMIA
     Route: 048
     Dates: end: 20050510
  3. OXAZEPAM [Concomitant]
     Route: 065
  4. HYDROCHLOROTHIAZIDE AND RAMIPRIL [Concomitant]
     Route: 048

REACTIONS (1)
  - MYOCARDIAL INFARCTION [None]
